FAERS Safety Report 5690811-7 (Version None)
Quarter: 2008Q2

REPORT INFORMATION
  Report Type: 
  Country: None (occurrence: None)
  Receive Date: 20080401
  Receipt Date: 20080328
  Transmission Date: 20081010
  Serious: Yes (Death, Hospitalization)
  Sender: FDA-Public Use
  Company Number: B0475764A

PATIENT
  Age: 45 Year
  Sex: Male

DRUGS (2)
  1. AUGMENTIN '125' [Suspect]
     Indication: INFECTED SKIN ULCER
     Dosage: 2.2G PER DAY
     Route: 042
     Dates: start: 20070607, end: 20070607
  2. WARFARIN SODIUM [Concomitant]

REACTIONS (13)
  - ATELECTASIS [None]
  - BRONCHOSPASM [None]
  - CARDIAC ARREST [None]
  - COAGULATION TEST ABNORMAL [None]
  - COMA [None]
  - DYSPNOEA [None]
  - ELECTROMECHANICAL DISSOCIATION [None]
  - LARYNGEAL OEDEMA [None]
  - LIVER FUNCTION TEST ABNORMAL [None]
  - LOSS OF CONSCIOUSNESS [None]
  - PLEURAL EFFUSION [None]
  - RENAL FUNCTION TEST ABNORMAL [None]
  - RESPIRATORY ARREST [None]
